FAERS Safety Report 22163010 (Version 2)
Quarter: 2024Q4

REPORT INFORMATION
  Report Type: Spontaneous
  Country: BR (occurrence: BR)
  Receive Date: 20230401
  Receipt Date: 20241015
  Transmission Date: 20250114
  Serious: No
  Sender: CELLTRION
  Company Number: BR-CELLTRION INC.-2022BR010969

PATIENT

DRUGS (4)
  1. INFLIXIMAB [Suspect]
     Active Substance: INFLIXIMAB
     Indication: Colitis ulcerative
     Dosage: NOT STARTED YET (DOSE OMISSION)
     Route: 042
  2. AZATHIOPRINE [Suspect]
     Active Substance: AZATHIOPRINE
     Indication: Gastrointestinal inflammation
     Dosage: 2 TO 3 PILLS PER DAY STARTED 8 MONTHS
     Route: 048
  3. AZATHIOPRINE [Suspect]
     Active Substance: AZATHIOPRINE
     Dosage: 25 MG, 2 TO 3 PILLS PER DAY FOR 8 MONTHS
     Route: 048
  4. AZATHIOPRINE [Suspect]
     Active Substance: AZATHIOPRINE
     Indication: Gastrointestinal inflammation
     Dosage: 2 TO 3 PILLS PER DAY STARTED 8 MONTHS
     Route: 048

REACTIONS (4)
  - Product distribution issue [Unknown]
  - Product storage error [Unknown]
  - Intentional dose omission [Unknown]
  - Therapy interrupted [Unknown]
